FAERS Safety Report 5532937-4 (Version None)
Quarter: 2007Q4

REPORT INFORMATION
  Report Type: 
  Country: None (occurrence: None)
  Receive Date: 20071204
  Receipt Date: 20071126
  Transmission Date: 20080405
  Serious: Yes (Hospitalization)
  Sender: FDA-Public Use
  Company Number: IT-NOVOPROD-267698

PATIENT
  Age: 79 Year
  Sex: Female

DRUGS (8)
  1. NOVORAPID [Suspect]
     Indication: DIABETES MELLITUS
     Dosage: 12 IU, QD
     Dates: start: 19870101
  2. WARFARIN SODIUM [Concomitant]
     Dosage: 4 MG, QD
     Dates: start: 20020101, end: 20070826
  3. LANTUS [Concomitant]
     Dates: start: 20010101
  4. PARACETAMOL [Concomitant]
     Dosage: 500 MG, QD
  5. DILTIAZEM [Concomitant]
     Dosage: 120 MG, QD
  6. NEXIUM [Concomitant]
     Dosage: 20 MG, QD
  7. COVERSYL                           /00790701/ [Concomitant]
     Dosage: 4 MG, QD
  8. EUTIROX                            /00068001/ [Concomitant]
     Dosage: 100 UG, UNK

REACTIONS (2)
  - HYPOGLYCAEMIA [None]
  - RESTLESSNESS [None]
